FAERS Safety Report 7625545-2 (Version None)
Quarter: 2011Q3

REPORT INFORMATION
  Report Type: 
  Country: None (occurrence: None)
  Receive Date: 20110721
  Receipt Date: 20110713
  Transmission Date: 20111222
  Serious: Yes (Other)
  Sender: FDA-Public Use
  Company Number: JP-ASTELLAS-2011JP004785

PATIENT
  Age: 21 Year
  Sex: Male

DRUGS (4)
  1. CHLORHEXIDINE GLUCONATE [Concomitant]
     Indication: ACANTHAMOEBA KERATITIS
     Dosage: UNK
     Route: 047
  2. FUNGUARD [Suspect]
     Route: 047
  3. ITRACONAZOLE [Concomitant]
     Dosage: 100 MG, UNKNOWN/D
     Route: 048
  4. FLUCONAZOLE [Concomitant]
     Indication: ACANTHAMOEBA KERATITIS
     Dosage: UNK
     Route: 047

REACTIONS (1)
  - DRUG PRESCRIBING ERROR [None]
